FAERS Safety Report 12407157 (Version 1)
Quarter: 2016Q2

REPORT INFORMATION
  Report Type: Spontaneous
  Country: US (occurrence: None)
  Receive Date: 20160525
  Receipt Date: 20160525
  Transmission Date: 20160815
  Serious: No
  Sender: FDA-Public Use
  Company Number: None

PATIENT
  Age: 21 Year
  Sex: Female

DRUGS (1)
  1. HALOPERIDOL 5MG [Suspect]
     Active Substance: HALOPERIDOL
     Indication: PSYCHOTIC DISORDER
     Dosage: 5MG 1 TAB BID ORAL
     Route: 048
     Dates: start: 20160425, end: 20160427

REACTIONS (2)
  - Trismus [None]
  - Dystonia [None]

NARRATIVE: CASE EVENT DATE: 20160427
